APPROVED DRUG PRODUCT: WELLBUTRIN XL
Active Ingredient: BUPROPION HYDROCHLORIDE
Strength: 150MG
Dosage Form/Route: TABLET, EXTENDED RELEASE;ORAL
Application: N021515 | Product #001 | TE Code: AB3
Applicant: BAUSCH HEALTH US LLC
Approved: Aug 28, 2003 | RLD: Yes | RS: No | Type: RX